FAERS Safety Report 5757166-0 (Version None)
Quarter: 2008Q2

REPORT INFORMATION
  Report Type: 
  Country: None (occurrence: None)
  Receive Date: 20080603
  Receipt Date: 20080523
  Transmission Date: 20081010
  Serious: Yes (Hospitalization)
  Sender: FDA-Public Use
  Company Number: JP-JNJFOC-20080300569

PATIENT
  Sex: Male

DRUGS (6)
  1. LEVOFLOXACIN [Suspect]
     Indication: INFECTION
     Route: 048
  2. CALONAL [Suspect]
     Indication: INFECTION
     Route: 048
  3. OZEX [Suspect]
     Indication: INFECTION
     Route: 048
  4. URSO 250 [Suspect]
     Indication: BILE DUCT STONE
     Route: 048
  5. MUCOSOLVAN [Concomitant]
     Route: 065
  6. SELBEX [Concomitant]
     Route: 065

REACTIONS (1)
  - INTERSTITIAL LUNG DISEASE [None]
